FAERS Safety Report 8495383-X (Version None)
Quarter: 2012Q3

REPORT INFORMATION
  Report Type: 
  Country: None (occurrence: None)
  Receive Date: 20120702
  Receipt Date: 20120702
  Transmission Date: 20120928
  Serious: Yes (Other)
  Sender: FDA-Public Use
  Company Number: None

PATIENT
  Sex: Female

DRUGS (1)
  1. THIOTHIXENE [Suspect]
     Dosage: 6MG DAILY AT BEDTIME PO
     Route: 048
     Dates: start: 20110726, end: 20120611

REACTIONS (1)
  - ABNORMAL BEHAVIOUR [None]
